FAERS Safety Report 15118485 (Version 1)
Quarter: 2018Q3

REPORT INFORMATION
  Report Type: Spontaneous
  Country: US (occurrence: US)
  Receive Date: 20180708
  Receipt Date: 20180708
  Transmission Date: 20181010
  Serious: No
  Sender: FDA-Public Use
  Company Number: US-SHIRE-US201824255

PATIENT
  Age: 84 Year
  Sex: Male
  Weight: 85.26 kg

DRUGS (1)
  1. XIIDRA [Suspect]
     Active Substance: LIFITEGRAST
     Indication: DRY EYE
     Dosage: 1 GTT, 2X/DAY:BID
     Route: 047
     Dates: start: 20180510, end: 20180525

REACTIONS (4)
  - Instillation site erythema [Recovered/Resolved]
  - Instillation site swelling [Recovered/Resolved]
  - Instillation site lacrimation [Recovering/Resolving]
  - Instillation site inflammation [Recovered/Resolved]

NARRATIVE: CASE EVENT DATE: 20180524
